FAERS Safety Report 15710694 (Version 2)
Quarter: 2019Q2

REPORT INFORMATION
  Report Type: Report from Study
  Country: CA (occurrence: CA)
  Receive Date: 20181211
  Receipt Date: 20190426
  Transmission Date: 20190711
  Serious: Yes (Hospitalization)
  Sender: FDA-Public Use
  Company Number: CA-SAKK-2018SA326935AA

PATIENT
  Age: 65 Year
  Sex: Female

DRUGS (30)
  1. CLOBETASOL PROPIONATE. [Concomitant]
     Active Substance: CLOBETASOL PROPIONATE
  2. METHOTREXATE. [Suspect]
     Active Substance: METHOTREXATE
     Dosage: UNK
  3. QUETIAPINE. [Suspect]
     Active Substance: QUETIAPINE
     Dosage: 50 MG, BID
  4. DOMPERIDONE [Concomitant]
     Active Substance: DOMPERIDONE
     Dosage: 1 DF, BID
  5. DIPROSONE [Concomitant]
     Active Substance: BETAMETHASONE DIPROPIONATE
  6. NOVORAPID [Concomitant]
     Active Substance: INSULIN ASPART
  7. ONE ALPHA [Concomitant]
     Active Substance: ALFACALCIDOL
     Dosage: 1 DF, QD
  8. TIAZAC [PIOGLITAZONE HYDROCHLORIDE] [Concomitant]
     Indication: HYPERTENSION
     Dosage: 1 DF, HS
  9. INSULIN ISOPHANE, HUMAN BIOSYNTHETIC [Concomitant]
  10. FUROSEMIDE. [Suspect]
     Active Substance: FUROSEMIDE
     Dosage: 40.0 UNK, BID
  11. D-ALPHA TOCOPHEROL [Suspect]
     Active Substance: .ALPHA.-TOCOPHEROL, D-
     Dosage: UNK UNK, QW
  12. ATORVASTATIN [Suspect]
     Active Substance: ATORVASTATIN
     Dosage: 40 MG, BID
  13. ERGOCALCIFEROL. [Suspect]
     Active Substance: ERGOCALCIFEROL
     Dosage: UNK UNK, QW
  14. COSENTYX [Suspect]
     Active Substance: SECUKINUMAB
     Dosage: 300 MG, QW
     Route: 058
     Dates: start: 20181003
  15. BETAMETHASONE VALERATE. [Concomitant]
     Active Substance: BETAMETHASONE VALERATE
  16. CLONIDINE. [Concomitant]
     Active Substance: CLONIDINE
  17. PREGABALIN. [Concomitant]
     Active Substance: PREGABALIN
  18. PULMICORT TURBUHALER [Concomitant]
     Active Substance: BUDESONIDE
     Dosage: UNK UNK, BID
  19. SYNTHROID [Concomitant]
     Active Substance: LEVOTHYROXINE SODIUM
     Dosage: 1 DF, QD
  20. COSENTYX [Suspect]
     Active Substance: SECUKINUMAB
     Indication: PSORIASIS
     Dosage: 300 MG, QM
     Route: 058
  21. HYDROXYZINE HYDROCHLORIDE. [Concomitant]
     Active Substance: HYDROXYZINE HYDROCHLORIDE
     Dosage: 2 DF, QID
  22. FORMOTEROL FUMARATE [Concomitant]
     Active Substance: FORMOTEROL FUMARATE
     Dosage: UNK, BID
  23. OTEZLA [Concomitant]
     Active Substance: APREMILAST
     Dosage: UNK
  24. CICLOSPORIN [Suspect]
     Active Substance: CYCLOSPORINE
     Dosage: UNK
  25. LAMISIL [Suspect]
     Active Substance: TERBINAFINE HYDROCHLORIDE
     Dosage: UNK, UNK
  26. ACITRETIN. [Concomitant]
     Active Substance: ACITRETIN
  27. BETAMETHASONE DIPROPIONATE. [Concomitant]
     Active Substance: BETAMETHASONE DIPROPIONATE
  28. TYLENOL [Concomitant]
     Active Substance: ACETAMINOPHEN
     Dosage: UNK, PRN
  29. IODINE. [Suspect]
     Active Substance: IODINE
     Dosage: UNK
  30. SALICYLIC ACID. [Concomitant]
     Active Substance: SALICYLIC ACID
     Dosage: UNK

REACTIONS (25)
  - Fall [Unknown]
  - Back pain [Unknown]
  - Sensory disturbance [Not Recovered/Not Resolved]
  - Gait disturbance [Unknown]
  - Dysuria [Not Recovered/Not Resolved]
  - Skin discolouration [Unknown]
  - Blood pressure decreased [Unknown]
  - Anxiety [Recovering/Resolving]
  - Heart rate decreased [Unknown]
  - Syncope [Unknown]
  - Contusion [Unknown]
  - Dyspnoea [Unknown]
  - Hypoglycaemia [Not Recovered/Not Resolved]
  - Infection [Unknown]
  - Pain in extremity [Recovering/Resolving]
  - Skin atrophy [Unknown]
  - Renal disorder [Unknown]
  - Peripheral swelling [Recovering/Resolving]
  - Weight decreased [Unknown]
  - Headache [Unknown]
  - Wrong technique in device usage process [Unknown]
  - Gait inability [Unknown]
  - Poor quality sleep [Unknown]
  - Pneumonia [Unknown]
  - Incorrect dose administered [Unknown]

NARRATIVE: CASE EVENT DATE: 2017
